FAERS Safety Report 19084895 (Version 2)
Quarter: 2023Q1

REPORT INFORMATION
  Report Type: Spontaneous
  Country: US (occurrence: US)
  Receive Date: 20210401
  Receipt Date: 20230209
  Transmission Date: 20230418
  Serious: Yes (Other)
  Sender: FDA-Public Use
  Company Number: US-PFIZER INC-2021254322

PATIENT
  Age: 79 Year
  Sex: Female

DRUGS (1)
  1. IBRANCE [Suspect]
     Active Substance: PALBOCICLIB
     Indication: Breast cancer metastatic
     Dosage: 75 MG

REACTIONS (5)
  - Second primary malignancy [Unknown]
  - Malignant lymphoid neoplasm [Unknown]
  - Neutropenia [Unknown]
  - Vomiting [Unknown]
  - Nausea [Unknown]
